FAERS Safety Report 14236574 (Version 6)
Quarter: 2018Q3

REPORT INFORMATION
  Report Type: Spontaneous
  Country: US (occurrence: US)
  Receive Date: 20171129
  Receipt Date: 20180907
  Transmission Date: 20181010
  Serious: Yes (Other)
  Sender: FDA-Public Use
  Company Number: US-PFIZER INC-2017510880

PATIENT
  Age: 70 Year
  Sex: Female
  Weight: 60 kg

DRUGS (9)
  1. ATENOLOL AND CHLORTHALIDONE [Concomitant]
     Active Substance: ATENOLOL\CHLORTHALIDONE
     Indication: HYPERTENSION
     Dosage: 1 DF, 1X/DAY (ATENOLOL 50MG/CHLORTHALIDONE 25MG) ONE TABLET BY MOUTH ONCE A DAY)
     Route: 048
  2. ANASTROZOLE. [Concomitant]
     Active Substance: ANASTROZOLE
     Indication: HORMONE THERAPY
     Dosage: 1 MG, 1X/DAY
  3. IBRANCE [Suspect]
     Active Substance: PALBOCICLIB
     Indication: BREAST CANCER METASTATIC
     Dosage: 125 MG, CYCLIC (1 CAPSULE ONCE A DAY FOR 3 WEEKS, THEN OFF FOR 7 DAYS)
     Route: 048
     Dates: start: 20170929
  4. IBRANCE [Suspect]
     Active Substance: PALBOCICLIB
     Dosage: 100 MG, CYCLIC (1 CAPSULE, ONCE A DAY FOR 21 DAYS)
     Route: 048
  5. KLOR?CON [Concomitant]
     Active Substance: POTASSIUM CHLORIDE
     Indication: BLOOD POTASSIUM ABNORMAL
     Dosage: 10 MEQ, 1X/DAY (10MEQ 1 TABLET BY MOUTH ONCE A DAY)
     Route: 048
     Dates: start: 201710
  6. IBRANCE [Suspect]
     Active Substance: PALBOCICLIB
     Dosage: 100 MG, CYCLIC[ONCE A DAY FOR 3 WEEKS, THEN OFF 1 WEEK]
     Route: 048
     Dates: start: 2017
  7. IBRANCE [Suspect]
     Active Substance: PALBOCICLIB
     Dosage: 100 MG, CYCLIC (ONCE DAILY BY MOUTH FOR 3 WEEKS AND THEN OFF FOR 1 WEEK)
     Route: 048
  8. ATENOLOL. [Concomitant]
     Active Substance: ATENOLOL
     Indication: BLOOD PRESSURE ABNORMAL
     Dosage: 1 DF, 1X/DAY
  9. EXEMESTANE. [Concomitant]
     Active Substance: EXEMESTANE
     Indication: BREAST CANCER
     Dosage: 25 MG, 1X/DAY (25MG ONE TABLET BY MOUTH ONCE DAILY)
     Route: 048
     Dates: start: 20170929

REACTIONS (8)
  - Gastrooesophageal reflux disease [Recovering/Resolving]
  - Neoplasm progression [Not Recovered/Not Resolved]
  - Pain in extremity [Recovering/Resolving]
  - Paraesthesia [Not Recovered/Not Resolved]
  - Peripheral swelling [Unknown]
  - Hypoaesthesia [Not Recovered/Not Resolved]
  - Joint swelling [Recovering/Resolving]
  - Thrombosis [Unknown]

NARRATIVE: CASE EVENT DATE: 20171122
